FAERS Safety Report 21706916 (Version 1)
Quarter: 2022Q4

REPORT INFORMATION
  Report Type: Spontaneous
  Country: US (occurrence: US)
  Receive Date: 20221209
  Receipt Date: 20221209
  Transmission Date: 20230113
  Serious: Yes (Other)
  Sender: FDA-Public Use
  Company Number: US-BRISTOL-MYERS SQUIBB COMPANY-2022-146119

PATIENT
  Age: 74 Year
  Sex: Female
  Weight: 70.3 kg

DRUGS (1)
  1. REVLIMID [Suspect]
     Active Substance: LENALIDOMIDE
     Indication: Myelodysplastic syndrome
     Dosage: 21D ON 7D OFF
     Route: 048

REACTIONS (6)
  - Arthropathy [Unknown]
  - Rotator cuff syndrome [Unknown]
  - Tendon disorder [Unknown]
  - Pain [Unknown]
  - Feeling abnormal [Unknown]
  - Memory impairment [Unknown]
